FAERS Safety Report 5228137-8 (Version None)
Quarter: 2007Q1

REPORT INFORMATION
  Report Type: 
  Country: None (occurrence: None)
  Receive Date: 20070130
  Receipt Date: 20061130
  Transmission Date: 20070707
  Serious: Yes (Death)
  Sender: FDA-Public Use
  Company Number: T200601553

PATIENT
  Age: 41 Year
  Sex: 0

DRUGS (3)
  1. HYDROCODONE /ACETAMINOPHEN (HYDROCODONE BITARTRATE, ACETAMINOPHEN) TAB [Suspect]
     Dosage: ORAL
     Route: 048
  2. CARISOPRODOL [Suspect]
     Dosage: ORAL
     Route: 048
  3. APAP W/HYDROCODONE (HYDROCODONE, PARACETAMOL) SLOW RELEASE TABLET [Suspect]
     Dosage: ORAL
     Route: 048

REACTIONS (1)
  - DEATH [None]
